FAERS Safety Report 16441353 (Version 2)
Quarter: 2019Q3

REPORT INFORMATION
  Report Type: Spontaneous
  Country: SE (occurrence: SE)
  Receive Date: 20190617
  Receipt Date: 20190711
  Transmission Date: 20191004
  Serious: Yes (Other)
  Sender: FDA-Public Use
  Company Number: SE-PFIZER INC-2018477850

PATIENT
  Age: 24 Year
  Sex: Female
  Weight: 75 kg

DRUGS (8)
  1. CELEBRA [Concomitant]
     Active Substance: CELECOXIB
     Dosage: 200 MG, 2X/DAY
     Dates: start: 201804
  2. BETAPRED [Concomitant]
     Active Substance: BETAMETHASONE SODIUM PHOSPHATE
     Dosage: 0.5 MG, ONCE DAILY
     Dates: start: 201810
  3. OXYCODONE [Concomitant]
     Active Substance: OXYCODONE
     Dosage: 5 MG, 2X/DAY
     Dates: start: 201809
  4. SUTENT [Suspect]
     Active Substance: SUNITINIB MALATE
     Indication: RENAL CANCER METASTATIC
     Dosage: 50 MG X1, CYCLIC (2 WEEKS ON, 1 WEEK OFF)
     Route: 048
     Dates: start: 20180514, end: 20181125
  5. AMLODIPINE [Concomitant]
     Active Substance: AMLODIPINE BESYLATE
     Dosage: 5 MG, 1X/DAY
     Dates: start: 201806
  6. KALCIPOS-D [Concomitant]
     Active Substance: CALCIUM CARBONATE\CHOLECALCIFEROL
     Dosage: 1 DF, TWICE DAILY (500 MG, 400 IU 1X2)
     Dates: start: 201804
  7. OMEPRAZOL [Concomitant]
     Active Substance: OMEPRAZOLE
     Dosage: 40 MG, ONCE DAILY
     Dates: start: 201802
  8. LEVAXIN [Concomitant]
     Active Substance: LEVOTHYROXINE SODIUM
     Dosage: 175 UG, 1X/DAY
     Dates: start: 201711

REACTIONS (4)
  - Pyoderma gangrenosum [Recovered/Resolved]
  - Skin striae [Recovered/Resolved]
  - Skin ulcer [Recovered/Resolved]
  - Pathological fracture [Unknown]

NARRATIVE: CASE EVENT DATE: 201811
